FAERS Safety Report 11293468 (Version 1)
Quarter: 2015Q3

REPORT INFORMATION
  Report Type: Spontaneous
  Country: BE (occurrence: BE)
  Receive Date: 20150722
  Receipt Date: 20150722
  Transmission Date: 20151125
  Serious: Yes (Other)
  Sender: FDA-Public Use
  Company Number: BE-FRESENIUS KABI-FK201503432

PATIENT
  Age: 77 Year
  Sex: Female

DRUGS (7)
  1. HEPARIN (MANUFACTURER UNKNOWN) [Suspect]
     Active Substance: HEPARIN SODIUM
     Indication: PRODUCT USED FOR UNKNOWN INDICATION
     Route: 065
  2. GLAZIDIM [Concomitant]
     Active Substance: CEFTAZIDIME
     Indication: ACUTE RESPIRATORY DISTRESS SYNDROME
  3. VANCOMYCIN [Concomitant]
     Active Substance: VANCOMYCIN
     Indication: PNEUMONIA STAPHYLOCOCCAL
     Route: 065
  4. VANCOMYCIN [Concomitant]
     Active Substance: VANCOMYCIN
     Indication: ACUTE RESPIRATORY DISTRESS SYNDROME
  5. ENOXAPARINE [Suspect]
     Active Substance: ENOXAPARIN
     Indication: PROPHYLAXIS
     Route: 065
  6. GLAZIDIM [Concomitant]
     Active Substance: CEFTAZIDIME
     Indication: PNEUMONIA STAPHYLOCOCCAL
     Route: 065
  7. LEPIRUDIN [Concomitant]
     Active Substance: LEPIRUDIN
     Indication: PRODUCT USED FOR UNKNOWN INDICATION
     Route: 065

REACTIONS (2)
  - Device failure [Not Recovered/Not Resolved]
  - Heparin-induced thrombocytopenia [Recovering/Resolving]
